FAERS Safety Report 5200900-9 (Version None)
Quarter: 2007Q1

REPORT INFORMATION
  Report Type: 
  Country: None (occurrence: None)
  Receive Date: 20070103
  Receipt Date: 20061221
  Transmission Date: 20070707
  Serious: Yes (Hospitalization)
  Sender: FDA-Public Use
  Company Number: GXKR2006HR08443

PATIENT
  Age: 76 Year
  Sex: Male

DRUGS (3)
  1. ASPIRIN [Suspect]
     Indication: ACUTE MYOCARDIAL INFARCTION
  2. CERTOPARIN SODIUM (NGX) (CERTOPARIN SODIUM) UNKNOWN [Suspect]
     Indication: ACUTE MYOCARDIAL INFARCTION
  3. STREPTASE [Suspect]
     Indication: ACUTE MYOCARDIAL INFARCTION
     Dosage: 1500000 IU, INTRAVENOUS
     Route: 042

REACTIONS (6)
  - ANAEMIA [None]
  - BLOOD PRESSURE DECREASED [None]
  - BODY TEMPERATURE INCREASED [None]
  - HAEMOPTYSIS [None]
  - PULMONARY HAEMATOMA [None]
  - TACHYCARDIA [None]
